FAERS Safety Report 19071674 (Version 1)
Quarter: 2021Q1

REPORT INFORMATION
  Report Type: Spontaneous
  Country: CA (occurrence: CA)
  Receive Date: 20210330
  Receipt Date: 20210330
  Transmission Date: 20210420
  Serious: Yes (Other)
  Sender: FDA-Public Use
  Company Number: CA-JNJFOC-20210345261

PATIENT
  Sex: Male

DRUGS (1)
  1. ULTRAM [Suspect]
     Active Substance: TRAMADOL HYDROCHLORIDE
     Indication: PRODUCT USED FOR UNKNOWN INDICATION
     Route: 065

REACTIONS (17)
  - Anger [Unknown]
  - Dizziness [Unknown]
  - Injury [Unknown]
  - Apathy [Unknown]
  - Headache [Unknown]
  - Psychiatric symptom [Unknown]
  - Dependence [Unknown]
  - Mental disorder [Unknown]
  - Insomnia [Unknown]
  - Depression [Unknown]
  - Diarrhoea [Unknown]
  - Mood swings [Unknown]
  - Substance use disorder [Unknown]
  - Gastrointestinal disorder [Unknown]
  - Loss of libido [Unknown]
  - Balance disorder [Unknown]
  - Constipation [Unknown]
